FAERS Safety Report 16191609 (Version 1)
Quarter: 2019Q2

REPORT INFORMATION
  Report Type: Spontaneous
  Country: NO (occurrence: NO)
  Receive Date: 20190412
  Receipt Date: 20190412
  Transmission Date: 20190711
  Serious: Yes (Other)
  Sender: FDA-Public Use
  Company Number: NO-TEVA-2019-NO-1038398

PATIENT
  Age: 71 Year
  Sex: Male

DRUGS (2)
  1. RITUXIMAB. [Suspect]
     Active Substance: RITUXIMAB
     Indication: WALDENSTROM^S MACROGLOBULINAEMIA
     Dosage: UNK UNK, UNKNOWN FREQ.(TWO REGIMENS)
     Route: 065
     Dates: start: 2016, end: 201806
  2. BENDAMUSTINE HYDROCHLORIDE. [Suspect]
     Active Substance: BENDAMUSTINE HYDROCHLORIDE
     Indication: WALDENSTROM^S MACROGLOBULINAEMIA
     Dosage: UNK UNK, CYCLIC
     Route: 042
     Dates: start: 2016, end: 201806

REACTIONS (2)
  - Waldenstrom^s macroglobulinaemia recurrent [Recovered/Resolved]
  - Adverse event [Recovered/Resolved]
